FAERS Safety Report 6732630-6 (Version None)
Quarter: 2010Q2

REPORT INFORMATION
  Report Type: 
  Country: None (occurrence: None)
  Receive Date: 20100514
  Receipt Date: 20100507
  Transmission Date: 20101027
  Serious: Yes (Hospitalization)
  Sender: FDA-Public Use
  Company Number: 2010SP021252

PATIENT
  Age: 43 Year
  Sex: Female
  Weight: 35 kg

DRUGS (6)
  1. REMERON [Suspect]
     Indication: DEPRESSION
     Dosage: 15 MG; ; PO, 30 MG; ; PO, 45 MG; ; PO
     Route: 048
     Dates: start: 20100330, end: 20100401
  2. REMERON [Suspect]
     Indication: DEPRESSION
     Dosage: 15 MG; ; PO, 30 MG; ; PO, 45 MG; ; PO
     Route: 048
     Dates: start: 20100303
  3. REMERON [Suspect]
     Indication: DEPRESSION
     Dosage: 15 MG; ; PO, 30 MG; ; PO, 45 MG; ; PO
     Route: 048
     Dates: start: 20100310
  4. REMERON [Suspect]
     Indication: DEPRESSION
     Dosage: 15 MG; ; PO, 30 MG; ; PO, 45 MG; ; PO
     Route: 048
     Dates: start: 20100317
  5. SEROQUEL [Suspect]
     Indication: DRUG USE FOR UNKNOWN INDICATION
     Dosage: 50 MG; ; PO
     Route: 048
     Dates: start: 20100326, end: 20100401
  6. U PAN [Concomitant]

REACTIONS (6)
  - BRADYPHRENIA [None]
  - DECREASED APPETITE [None]
  - DEPRESSED LEVEL OF CONSCIOUSNESS [None]
  - DYSURIA [None]
  - INSOMNIA [None]
  - SEROTONIN SYNDROME [None]
